FAERS Safety Report 15483468 (Version 1)
Quarter: 2018Q4

REPORT INFORMATION
  Report Type: Other
  Country: IE (occurrence: IE)
  Receive Date: 20181010
  Receipt Date: 20181010
  Transmission Date: 20190205
  Serious: Yes (Hospitalization)
  Sender: FDA-Public Use
  Company Number: IE-CELLTRION INC.-2018IE022891

PATIENT

DRUGS (10)
  1. INFLIXIMAB (UNKNOWN) [Suspect]
     Active Substance: INFLIXIMAB
     Dosage: 5 MG/KG, EVERY 8 WEEKS; DOSAGE FORM: LYOPHILIZED POWDER, FOR 8 MONTHS DOSAGE FORM: LYOPHILIZED POWDE
     Route: 042
     Dates: start: 2013, end: 2013
  2. HUMIRA [Suspect]
     Active Substance: ADALIMUMAB
     Indication: HIDRADENITIS
     Dosage: 40 MG, EVERY 2 WEEK
     Route: 058
     Dates: start: 201109, end: 201111
  3. INFLIXIMAB (UNKNOWN) [Suspect]
     Active Substance: INFLIXIMAB
     Indication: PRODUCT USED FOR UNKNOWN INDICATION
     Dosage: 5 MG/KG; DOSAGE FORM: LYOPHILIZED POWDER, 8/52
     Route: 042
     Dates: start: 201804, end: 201804
  4. USTEKINUMAB [Suspect]
     Active Substance: USTEKINUMAB
     Indication: PRODUCT USED FOR UNKNOWN INDICATION
     Dosage: 45 MG, EVERY 12 WEEKS
     Route: 058
     Dates: start: 2013, end: 2013
  5. ERYTHROMYCIN. [Concomitant]
     Active Substance: ERYTHROMYCIN
     Indication: PRODUCT USED FOR UNKNOWN INDICATION
     Dosage: UNK
     Route: 065
  6. CO-AMOXICLAV                       /00756801/ [Concomitant]
     Active Substance: AMOXICILLIN\CLAVULANIC ACID
     Indication: PRODUCT USED FOR UNKNOWN INDICATION
     Route: 065
  7. METHOTREXATE. [Concomitant]
     Active Substance: METHOTREXATE
     Indication: PRODUCT USED FOR UNKNOWN INDICATION
     Dosage: DOSAGE FORM: UNSPECIFIED, FOR 8/12
     Route: 065
     Dates: start: 2013
  8. HUMIRA [Suspect]
     Active Substance: ADALIMUMAB
     Dosage: 40 MG, EVERY  1 WEEK
     Route: 058
     Dates: start: 201112, end: 201205
  9. HUMIRA [Suspect]
     Active Substance: ADALIMUMAB
     Dosage: 40 MG, EVERY 1 WEEK
     Route: 058
     Dates: start: 201407, end: 201711
  10. USTEKINUMAB [Suspect]
     Active Substance: USTEKINUMAB
     Dosage: 90 MG, EVERY 8 WEEKS
     Route: 058
     Dates: start: 2013, end: 201407

REACTIONS (3)
  - Drug ineffective [Unknown]
  - Unevaluable investigation [Unknown]
  - Incisional drainage [Unknown]

NARRATIVE: CASE EVENT DATE: 2013
